FAERS Safety Report 7069599-3 (Version None)
Quarter: 2010Q4

REPORT INFORMATION
  Report Type: 
  Country: None (occurrence: None)
  Receive Date: 20101028
  Receipt Date: 20100330
  Transmission Date: 20110411
  Serious: No
  Sender: FDA-Public Use
  Company Number: US-WYE-H14375910

PATIENT
  Sex: Male
  Weight: 74.91 kg

DRUGS (5)
  1. PROTONIX [Suspect]
     Indication: GASTROOESOPHAGEAL REFLUX DISEASE
     Route: 048
     Dates: start: 20091228, end: 20100301
  2. CLINDAMYCIN [Suspect]
     Indication: TOOTH DISORDER
     Dosage: UNKNOWN
  3. DOXYCYCLINE [Suspect]
     Indication: LYME DISEASE
     Dosage: UNKNOWN
  4. ACETAMINOPHEN [Concomitant]
  5. IBUPROFEN [Concomitant]

REACTIONS (3)
  - DYSPNOEA [None]
  - GASTROOESOPHAGEAL REFLUX DISEASE [None]
  - PARAESTHESIA [None]
